FAERS Safety Report 22083409 (Version 1)
Quarter: 2023Q1

REPORT INFORMATION
  Report Type: Spontaneous
  Country: US (occurrence: None)
  Receive Date: 20230309
  Receipt Date: 20230309
  Transmission Date: 20230418
  Serious: Yes (Hospitalization)
  Sender: FDA-Public Use
  Company Number: None

PATIENT
  Age: 66 Year
  Sex: Female

DRUGS (2)
  1. AMBRISENTAN [Suspect]
     Active Substance: AMBRISENTAN
     Indication: Pulmonary arterial hypertension
     Dosage: 10MG ONCE DAILY BY MOUTH
     Route: 048
     Dates: start: 202209
  2. ADEMPAS [Suspect]
     Active Substance: RIOCIGUAT

REACTIONS (3)
  - Upper limb fracture [None]
  - Hypotension [None]
  - Lower limb fracture [None]

NARRATIVE: CASE EVENT DATE: 20230101
